FAERS Safety Report 10725426 (Version 1)
Quarter: 2015Q1

REPORT INFORMATION
  Report Type: Report from Study
  Country: FR (occurrence: FR)
  Receive Date: 20150121
  Receipt Date: 20150121
  Transmission Date: 20150721
  Serious: Yes (Death, Hospitalization, Other)
  Sender: FDA-Public Use
  Company Number: FR-ROCHE-1521387

PATIENT
  Sex: Male

DRUGS (5)
  1. CORTANCYL [Concomitant]
     Active Substance: PREDNISONE
     Route: 065
  2. CORTANCYL [Concomitant]
     Active Substance: PREDNISONE
     Route: 065
  3. RITUXIMAB [Suspect]
     Active Substance: RITUXIMAB
     Indication: RHEUMATOID ARTHRITIS
     Dosage: D 1,
     Route: 042
     Dates: start: 20070315
  4. CORTANCYL [Concomitant]
     Active Substance: PREDNISONE
     Route: 065
  5. CORTANCYL [Concomitant]
     Active Substance: PREDNISONE
     Route: 065

REACTIONS (10)
  - Hyperthermia [Recovered/Resolved]
  - Chest discomfort [Unknown]
  - Pneumonia [Recovered/Resolved with Sequelae]
  - Bronchitis [Recovered/Resolved]
  - Meningoencephalitis bacterial [Recovered/Resolved with Sequelae]
  - Deafness unilateral [Unknown]
  - Resuscitation [Recovered/Resolved with Sequelae]
  - Sialoadenitis [Unknown]
  - Bronchopneumonia [Fatal]
  - Neuromyopathy [Recovered/Resolved with Sequelae]

NARRATIVE: CASE EVENT DATE: 200903
